FAERS Safety Report 18188609 (Version 2)
Quarter: 2020Q3

REPORT INFORMATION
  Report Type: Spontaneous
  Country: JP (occurrence: JP)
  Receive Date: 20200824
  Receipt Date: 20200831
  Transmission Date: 20201103
  Serious: Yes (Hospitalization)
  Sender: FDA-Public Use
  Company Number: JP-GLAXOSMITHKLINE-JP2020JPN164862

PATIENT
  Age: 31 Year
  Sex: Female
  Weight: 65 kg

DRUGS (5)
  1. HUMAN NORMAL IMMUNOGLOBIN [Concomitant]
     Active Substance: HUMAN IMMUNOGLOBULIN G
     Dosage: 0.4 G/KG, 1D
     Route: 041
  2. LAMICTAL [Suspect]
     Active Substance: LAMOTRIGINE
     Indication: JUVENILE MYOCLONIC EPILEPSY
     Dosage: 50 MG, 1D
     Route: 048
  3. PYRIDOSTIGMINE BROMIDE. [Concomitant]
     Active Substance: PYRIDOSTIGMINE BROMIDE
     Dosage: 60 MG, 1D
     Route: 048
  4. PREDNISOLONE. [Concomitant]
     Active Substance: PREDNISOLONE
     Dosage: 13 MG, 1D
     Route: 048
  5. TACROLIMUS. [Concomitant]
     Active Substance: TACROLIMUS
     Dosage: 3 MG, 1D
     Route: 048

REACTIONS (7)
  - Exposure during pregnancy [Unknown]
  - Malaise [Recovering/Resolving]
  - Muscular weakness [Recovered/Resolved]
  - Live birth [Unknown]
  - Maternal exposure during breast feeding [Unknown]
  - Fatigue [Recovered/Resolved]
  - Dyspnoea [Recovered/Resolved]
